FAERS Safety Report 7364556-1 (Version None)
Quarter: 2011Q1

REPORT INFORMATION
  Report Type: 
  Country: None (occurrence: None)
  Receive Date: 20110316
  Receipt Date: 20110316
  Transmission Date: 20110831
  Serious: Yes (Other)
  Sender: FDA-Public Use
  Company Number: None

PATIENT
  Sex: Female
  Weight: 62.1428 kg

DRUGS (1)
  1. DERMATAL ANTI-AGING CREAM [Suspect]
     Indication: SKIN WRINKLING
     Dosage: MORNING + NIGHT
     Dates: start: 20110201, end: 20110301

REACTIONS (1)
  - HYPERSENSITIVITY [None]
